FAERS Safety Report 10267274 (Version 2)
Quarter: 2014Q2

REPORT INFORMATION
  Report Type: Spontaneous
  Country: US (occurrence: US)
  Receive Date: 20140630
  Receipt Date: 20140630
  Transmission Date: 20141212
  Serious: Yes (Other)
  Sender: FDA-Public Use
  Company Number: US-JNJFOC-20130618496

PATIENT
  Sex: 0

DRUGS (5)
  1. DOXORUBICIN HYDROCHLORIDE [Suspect]
     Indication: TRANSITIONAL CELL CARCINOMA
     Dosage: FOR 4 CYCLES
     Route: 042
  2. METHOTREXATE [Suspect]
     Indication: TRANSITIONAL CELL CARCINOMA
     Dosage: FOR 4 CYCLES
     Route: 042
  3. VINBLASTINE [Suspect]
     Indication: TRANSITIONAL CELL CARCINOMA
     Dosage: FOR 4 CYCLES
     Route: 042
  4. CISPLATIN [Suspect]
     Indication: TRANSITIONAL CELL CARCINOMA
     Dosage: FOR 4 CYCLES
     Route: 042
  5. PEGFILGRASTIM [Concomitant]
     Indication: TRANSITIONAL CELL CARCINOMA
     Route: 058

REACTIONS (9)
  - Palmar-plantar erythrodysaesthesia syndrome [Unknown]
  - Hypokalaemia [Unknown]
  - Neutropenia [Unknown]
  - Mucosal inflammation [Unknown]
  - Small intestinal obstruction [Unknown]
  - Gastrointestinal stoma complication [Unknown]
  - Off label use [Unknown]
  - Blood creatinine increased [Unknown]
  - Infection [Unknown]
